FAERS Safety Report 5476047-3 (Version None)
Quarter: 2007Q3

REPORT INFORMATION
  Report Type: 
  Country: None (occurrence: None)
  Receive Date: 20070904
  Receipt Date: 20060718
  Transmission Date: 20080115
  Serious: Yes (Other)
  Sender: FDA-Public Use
  Company Number: 146651USA

PATIENT
  Age: 59 Year
  Sex: Female

DRUGS (2)
  1. METOCLOPRAMIDE [Suspect]
     Indication: GASTROOESOPHAGEAL REFLUX DISEASE
     Dosage: 10 MG TABLET BID OR TID BEFORE MEALS (10MG), ORAL
     Route: 048
     Dates: start: 20060328, end: 20060530
  2. ESOMEPRAZOLE [Concomitant]

REACTIONS (5)
  - CONFUSIONAL STATE [None]
  - DEPRESSION [None]
  - DRUG INEFFECTIVE [None]
  - FATIGUE [None]
  - SUICIDAL IDEATION [None]
